FAERS Safety Report 19187187 (Version 3)
Quarter: 2021Q3

REPORT INFORMATION
  Report Type: Report from Study
  Country: US (occurrence: US)
  Receive Date: 20210427
  Receipt Date: 20210718
  Transmission Date: 20211014
  Serious: No
  Sender: FDA-Public Use
  Company Number: NVSC2021US093252

PATIENT
  Age: 47 Year
  Sex: Male

DRUGS (1)
  1. COSENTYX [Suspect]
     Active Substance: SECUKINUMAB
     Indication: PSORIASIS
     Dosage: 300 MG, QW ( Q WEEK FOR FIVE WEEKS AND THEN Q FOUR WEEKS)
     Route: 058
     Dates: start: 20210315

REACTIONS (3)
  - Pain in extremity [Unknown]
  - Therapeutic product effect incomplete [Unknown]
  - Musculoskeletal stiffness [Unknown]

NARRATIVE: CASE EVENT DATE: 20210323
